FAERS Safety Report 6314437-7 (Version None)
Quarter: 2009Q3

REPORT INFORMATION
  Report Type: 
  Country: None (occurrence: None)
  Receive Date: 20090819
  Receipt Date: 20090811
  Transmission Date: 20100115
  Serious: Yes (Hospitalization)
  Sender: FDA-Public Use
  Company Number: BR-ROCHE-650332

PATIENT
  Weight: 2.2 kg

DRUGS (1)
  1. TAMIFLU [Suspect]
     Route: 064
     Dates: start: 20090801, end: 20090801

REACTIONS (1)
  - PREMATURE LABOUR [None]
